FAERS Safety Report 19395345 (Version 1)
Quarter: 2021Q2

REPORT INFORMATION
  Report Type: Spontaneous
  Country: FR (occurrence: FR)
  Receive Date: 20210609
  Receipt Date: 20210609
  Transmission Date: 20210717
  Serious: Yes (Other)
  Sender: FDA-Public Use
  Company Number: FR-ANIPHARMA-2021-FR-000124

PATIENT
  Age: 57 Year
  Sex: Female

DRUGS (1)
  1. ARIMIDEX [Suspect]
     Active Substance: ANASTROZOLE
     Indication: BREAST CANCER
     Dosage: 1 DF DAILY
     Route: 048
     Dates: start: 20051101, end: 20101015

REACTIONS (1)
  - Enuresis [Unknown]

NARRATIVE: CASE EVENT DATE: 20060501
